FAERS Safety Report 12213323 (Version 6)
Quarter: 2018Q4

REPORT INFORMATION
  Report Type: Report from Study
  Country: CO (occurrence: CO)
  Receive Date: 20160328
  Receipt Date: 20181227
  Transmission Date: 20190204
  Serious: Yes (Other)
  Sender: FDA-Public Use
  Company Number: PHHY2016CO039000

PATIENT
  Age: 76 Year
  Sex: Male
  Weight: 72 kg

DRUGS (4)
  1. IRON [Concomitant]
     Active Substance: IRON
     Indication: PRODUCT USED FOR UNKNOWN INDICATION
     Route: 065
  2. GLIVEC [Suspect]
     Active Substance: IMATINIB MESYLATE
     Dosage: 400 MG, QD
     Route: 048
     Dates: start: 201403, end: 20180804
  3. GLIVEC [Suspect]
     Active Substance: IMATINIB MESYLATE
     Indication: CHRONIC MYELOID LEUKAEMIA
     Dosage: 400 MG, QD
     Route: 048
     Dates: start: 20030820
  4. TAXUS [Concomitant]
     Indication: PRODUCT USED FOR UNKNOWN INDICATION
     Dosage: UNK
     Route: 065

REACTIONS (3)
  - Second primary malignancy [Unknown]
  - Breast cancer [Unknown]
  - Lung neoplasm malignant [Unknown]

NARRATIVE: CASE EVENT DATE: 201512
